FAERS Safety Report 19091903 (Version 4)
Quarter: 2021Q2

REPORT INFORMATION
  Report Type: Report from Study
  Country: CH (occurrence: CH)
  Receive Date: 20210405
  Receipt Date: 20210604
  Transmission Date: 20210717
  Serious: Yes (Death, Other)
  Sender: FDA-Public Use
  Company Number: CH-CELGENEUS-CHE-20210304365

PATIENT
  Age: 76 Year
  Sex: Female
  Weight: 43 kg

DRUGS (3)
  1. JCAR017 [Suspect]
     Active Substance: LISOCABTAGENE MARALEUCEL
     Indication: B-CELL LYMPHOMA
     Dosage: 1 X 10^8 CAR + T CELLS
     Route: 041
     Dates: start: 20210217, end: 20210217
  2. FLUDARABINE [Suspect]
     Active Substance: FLUDARABINE PHOSPHATE
     Indication: B-CELL LYMPHOMA
     Dosage: 21.9 MILLIGRAM
     Route: 041
     Dates: start: 20210212, end: 20210214
  3. CYCLOPHOSPHAMIDE. [Suspect]
     Active Substance: CYCLOPHOSPHAMIDE
     Indication: B-CELL LYMPHOMA
     Dosage: 438 MILLIGRAM
     Route: 041
     Dates: start: 20210212, end: 20210214

REACTIONS (3)
  - Gastric haemorrhage [Recovered/Resolved]
  - Haemophagocytic lymphohistiocytosis [Fatal]
  - Gastric haemorrhage [Recovered/Resolved]

NARRATIVE: CASE EVENT DATE: 20210313
